FAERS Safety Report 8425975-5 (Version None)
Quarter: 2012Q2

REPORT INFORMATION
  Report Type: 
  Country: None (occurrence: None)
  Receive Date: 20120604
  Receipt Date: 20120519
  Transmission Date: 20120825
  Serious: Yes (Hospitalization)
  Sender: FDA-Public Use
  Company Number: ACO_29818_2012

PATIENT
  Sex: Female

DRUGS (2)
  1. CARVEDILOL [Concomitant]
  2. FAMPYRA (DALFAMPRIDINE) TABLET [Suspect]
     Indication: PRODUCT USED FOR UNKNOWN INDICATION

REACTIONS (3)
  - ESSENTIAL THROMBOCYTHAEMIA [None]
  - HYPERTENSION [None]
  - CEREBROVASCULAR ACCIDENT [None]
